FAERS Safety Report 25646303 (Version 1)
Quarter: 2025Q3

REPORT INFORMATION
  Report Type: Spontaneous
  Country: EU (occurrence: EU)
  Receive Date: 20250805
  Receipt Date: 20250805
  Transmission Date: 20251020
  Serious: Yes (Other)
  Sender: PFIZER
  Company Number: None

PATIENT
  Age: 64 Year
  Sex: Male

DRUGS (2)
  1. SUNITINIB MALATE [Suspect]
     Active Substance: SUNITINIB MALATE
     Indication: Renal cancer
     Dosage: DOSAGE 1X1 6 CYCLES AT A DOSE OF 50 MG ONCE DAILY
     Route: 048
     Dates: start: 20200123
  2. SUNITINIB MALATE [Suspect]
     Active Substance: SUNITINIB MALATE
     Dosage: FROM THE 7TH CYCLE, REDUCTION OF THE DOSE TO 37.5 MG ONCE DAILY
     Route: 048

REACTIONS (3)
  - Myalgia [Unknown]
  - Polyneuropathy [Unknown]
  - Palmar-plantar erythrodysaesthesia syndrome [Unknown]
